FAERS Safety Report 23803783 (Version 1)
Quarter: 2024Q2

REPORT INFORMATION
  Report Type: Spontaneous
  Country: GB (occurrence: GB)
  Receive Date: 20240501
  Receipt Date: 20240501
  Transmission Date: 20240716
  Serious: Yes (Other)
  Sender: FDA-Public Use
  Company Number: None

PATIENT
  Age: 77 Year
  Sex: Female
  Weight: 52 kg

DRUGS (1)
  1. TRIMETHOPRIM [Suspect]
     Active Substance: TRIMETHOPRIM
     Indication: Urinary tract infection
     Dosage: DURATION: 2 DAYS
     Route: 065
     Dates: start: 20240112, end: 20240114

REACTIONS (4)
  - Aphthous ulcer [Recovered/Resolved]
  - Mouth swelling [Unknown]
  - Oral candidiasis [Unknown]
  - Oral pain [Unknown]
